FAERS Safety Report 7706030-6 (Version None)
Quarter: 2011Q3

REPORT INFORMATION
  Report Type: 
  Country: None (occurrence: None)
  Receive Date: 20110824
  Receipt Date: 20110819
  Transmission Date: 20111222
  Serious: Yes (Other)
  Sender: FDA-Public Use
  Company Number: PHHY2011BR74790

PATIENT
  Sex: Female

DRUGS (3)
  1. KETOPROFEN [Concomitant]
     Dosage: 100 MG, UNK
  2. DICLOFENAC SODIUM [Suspect]
     Dosage: UNK UKN, UNK
     Route: 048
  3. VOLTAREN [Suspect]
     Dosage: 50 MG, UNK
     Route: 054

REACTIONS (5)
  - GASTRIC DISORDER [None]
  - DYSGEUSIA [None]
  - DRUG INEFFECTIVE [None]
  - BONE PAIN [None]
  - HAEMOPTYSIS [None]
